FAERS Safety Report 17474545 (Version 2)
Quarter: 2020Q2

REPORT INFORMATION
  Report Type: Spontaneous
  Country: US (occurrence: US)
  Receive Date: 20200228
  Receipt Date: 20200402
  Transmission Date: 20200713
  Serious: No
  Sender: FDA-Public Use
  Company Number: US-GLAXOSMITHKLINE-US2020AMR029988

PATIENT
  Age: 21 Year
  Sex: Female
  Weight: 76.2 kg

DRUGS (8)
  1. INFLUENZA VACCINE QUADRIVALENT UNSPECIFIED SEASON SOLUTION FOR INJECTI [Suspect]
     Active Substance: INFLUENZA VIRUS VACCINE QUADRIVALENT TYPE A+B
     Indication: PROPHYLAXIS
  2. PREDNISONE TABLET [Concomitant]
     Active Substance: PREDNISONE
     Indication: PRODUCT USED FOR UNKNOWN INDICATION
     Dosage: 1 DF, QD
     Route: 048
  3. ADVAIR DISKUS [Suspect]
     Active Substance: FLUTICASONE PROPIONATE\SALMETEROL XINAFOATE
     Indication: PRODUCT USED FOR UNKNOWN INDICATION
     Dosage: UNK
     Route: 065
  4. AZITHROMYCIN TABLET [Concomitant]
     Active Substance: AZITHROMYCIN
     Dosage: 1 DF, QD
     Route: 048
  5. ALBUTEROL SULFATE NEBULISER SOLUTION [Suspect]
     Active Substance: ALBUTEROL SULFATE
     Indication: PRODUCT USED FOR UNKNOWN INDICATION
     Dosage: UNK UNK, QD  0.083%
     Route: 055
  6. ORTHO CYCLEN TABLET [Concomitant]
     Indication: PRODUCT USED FOR UNKNOWN INDICATION
     Dosage: 1 DF, QD (0.25-35 MG-MCG)
     Route: 048
  7. VENTOLIN HFA [Suspect]
     Active Substance: ALBUTEROL SULFATE
     Indication: PRODUCT USED FOR UNKNOWN INDICATION
     Dosage: 2 PUFF(S), PRN
     Route: 065
  8. AZITHROMYCIN TABLET [Concomitant]
     Active Substance: AZITHROMYCIN
     Indication: PRODUCT USED FOR UNKNOWN INDICATION
     Dosage: 2 DF, QD
     Route: 048

REACTIONS (6)
  - Post-tussive vomiting [Unknown]
  - Drug ineffective [Unknown]
  - Cough [Unknown]
  - Wheezing [Unknown]
  - Asthma [Unknown]
  - Dyspnoea [Unknown]

NARRATIVE: CASE EVENT DATE: 201707
